FAERS Safety Report 10096078 (Version 1)
Quarter: 2014Q2

REPORT INFORMATION
  Report Type: Spontaneous
  Country: IT (occurrence: IT)
  Receive Date: 20140422
  Receipt Date: 20140422
  Transmission Date: 20141212
  Serious: Yes (Other)
  Sender: FDA-Public Use
  Company Number: IT-WATSON-2014-07582

PATIENT
  Age: 35 Year
  Sex: Male

DRUGS (1)
  1. PREGABALIN (UNKNOWN) [Suspect]
     Indication: PARTIAL SEIZURES WITH SECONDARY GENERALISATION
     Dosage: 300 MG, DAILY
     Route: 065

REACTIONS (2)
  - Anorgasmia [Recovered/Resolved]
  - Ejaculation delayed [Recovered/Resolved]
